FAERS Safety Report 5368112-6 (Version None)
Quarter: 2007Q2

REPORT INFORMATION
  Report Type: 
  Country: None (occurrence: None)
  Receive Date: 20070622
  Receipt Date: 20070608
  Transmission Date: 20071010
  Serious: Yes (Other)
  Sender: FDA-Public Use
  Company Number: DE-PFIZER INC-2007050530

PATIENT
  Age: 52 Year
  Sex: Male

DRUGS (2)
  1. CHAMPIX [Suspect]
     Indication: SMOKING CESSATION THERAPY
     Route: 048
     Dates: start: 20070531, end: 20070607
  2. ACTRAPID [Concomitant]

REACTIONS (15)
  - ABNORMAL DREAMS [None]
  - ANOREXIA [None]
  - BLOOD GLUCOSE INCREASED [None]
  - BONE DISORDER [None]
  - FATIGUE [None]
  - FLATULENCE [None]
  - GASTRIC DISORDER [None]
  - HEADACHE [None]
  - HYPOAESTHESIA [None]
  - MOOD ALTERED [None]
  - MUSCULOSKELETAL CHEST PAIN [None]
  - PHOTOSENSITIVITY REACTION [None]
  - SOMNOLENCE [None]
  - THINKING ABNORMAL [None]
  - TINNITUS [None]
